FAERS Safety Report 10752406 (Version 1)
Quarter: 2015Q1

REPORT INFORMATION
  Report Type: Spontaneous
  Country: US (occurrence: US)
  Receive Date: 20150130
  Receipt Date: 20150130
  Transmission Date: 20150721
  Serious: No
  Sender: FDA-Public Use
  Company Number: US-ENDO PHARMACEUTICALS INC.-FORT20140030

PATIENT
  Age: 20 Year
  Sex: Male
  Weight: 104.87 kg

DRUGS (3)
  1. FORTESTA [Suspect]
     Active Substance: TESTOSTERONE
     Indication: BRAIN NEOPLASM
     Route: 061
     Dates: start: 201311
  2. BACLOFEN TABLETS 10MG [Concomitant]
     Active Substance: BACLOFEN
     Indication: SPINA BIFIDA
     Route: 048
  3. TRAMADOL [Concomitant]
     Active Substance: TRAMADOL
     Indication: SPINA BIFIDA
     Route: 048

REACTIONS (6)
  - Off label use [Not Recovered/Not Resolved]
  - Lethargy [Not Recovered/Not Resolved]
  - Drug ineffective [Not Recovered/Not Resolved]
  - Weight increased [Not Recovered/Not Resolved]
  - Hair growth abnormal [Not Recovered/Not Resolved]
  - Drug administered at inappropriate site [Not Recovered/Not Resolved]

NARRATIVE: CASE EVENT DATE: 201311
